FAERS Safety Report 4647399-9 (Version None)
Quarter: 2005Q2

REPORT INFORMATION
  Report Type: 
  Country: None (occurrence: None)
  Receive Date: 20050427
  Receipt Date: 20050427
  Transmission Date: 20051028
  Serious: Yes (Hospitalization)
  Sender: FDA-Public Use
  Company Number: None

PATIENT
  Age: 72 Year
  Sex: Male
  Weight: 59.8748 kg

DRUGS (7)
  1. OXALIPLATIN ON DAY 1 EVERY 3 WEEKS [Suspect]
     Indication: PANCREATIC CARCINOMA
     Dosage: 130 MG/M2  120 MIN IV
     Route: 042
     Dates: start: 20050303
  2. OXALIPLATIN ON DAY 1 EVERY 3 WEEKS [Suspect]
     Indication: PANCREATIC CARCINOMA
     Dosage: 130 MG/M2  120 MIN IV
     Route: 042
     Dates: start: 20050323
  3. OXALIPLATIN ON DAY 1 EVERY 3 WEEKS [Suspect]
     Indication: PANCREATIC CARCINOMA
     Dosage: 130 MG/M2  120 MIN IV
     Route: 042
     Dates: start: 20050413
  4. CAPECITABINE 2 DIVIDED DOSES FOR 14 DAYS [Suspect]
     Indication: PANCREATIC CARCINOMA
     Dosage: 2000 MG/M2 PO QD
     Route: 048
     Dates: start: 20050303, end: 20050425
  5. PERCOCET [Concomitant]
  6. LOVENOX [Concomitant]
  7. COMPAZINE [Concomitant]

REACTIONS (1)
  - ABDOMINAL PAIN [None]
